FAERS Safety Report 5133307-3 (Version None)
Quarter: 2006Q4

REPORT INFORMATION
  Report Type: 
  Country: None (occurrence: None)
  Receive Date: 20060831
  Receipt Date: 20060606
  Transmission Date: 20070319
  Serious: No
  Sender: FDA-Public Use
  Company Number: 2006-BP-03573BP

PATIENT
  Age: 73 Year
  Sex: Male
  Weight: 93.6 kg

DRUGS (10)
  1. SPIRIVA [Suspect]
     Indication: CHRONIC OBSTRUCTIVE PULMONARY DISEASE
     Dosage: 18 MCG (18 MCG,1 IN 1 D),IH
     Dates: start: 20060210
  2. SPIRIVA [Suspect]
  3. TOPROL-XL [Concomitant]
  4. ZETIA [Concomitant]
  5. UROXATRAL [Concomitant]
  6. FLONASE [Concomitant]
  7. ALBUTEROL [Concomitant]
  8. LUPRON [Concomitant]
  9. CASODEX [Concomitant]
  10. GLUCOSAMINE (GLUCOSAMINE) [Concomitant]

REACTIONS (3)
  - DRUG INEFFECTIVE [None]
  - DYSPNOEA [None]
  - FATIGUE [None]
